FAERS Safety Report 4829285-4 (Version None)
Quarter: 2005Q4

REPORT INFORMATION
  Report Type: 
  Country: None (occurrence: None)
  Receive Date: 20051116
  Receipt Date: 20051108
  Transmission Date: 20060501
  Serious: Yes (Hospitalization)
  Sender: FDA-Public Use
  Company Number: 422499

PATIENT
  Age: 79 Year
  Sex: Female

DRUGS (6)
  1. CARVEDILOL [Suspect]
     Indication: HYPERTENSIVE HEART DISEASE
     Dosage: 5MG PER DAY
     Route: 048
     Dates: start: 20040903
  2. LASIX [Suspect]
     Indication: CARDIAC FAILURE CHRONIC
     Dosage: 20MG PER DAY
     Route: 048
     Dates: start: 20040819
  3. ALDACTONE [Concomitant]
     Dates: start: 20040819, end: 20040830
  4. RENIVACE [Concomitant]
     Dates: start: 20040819, end: 20040831
  5. SLOW-K [Concomitant]
     Dates: start: 20040821, end: 20040830
  6. ADALAT [Concomitant]
     Dates: start: 20040826

REACTIONS (1)
  - RENAL DISORDER [None]
